FAERS Safety Report 10025775 (Version 1)
Quarter: 2014Q1

REPORT INFORMATION
  Report Type: Spontaneous
  Country: DE (occurrence: None)
  Receive Date: 20140314
  Receipt Date: 20140314
  Transmission Date: 20141002
  Serious: Yes (Life-Threatening, Hospitalization)
  Sender: FDA-Public Use
  Company Number: FK201400809

PATIENT
  Age: 54 Year
  Sex: Female
  Weight: 90 kg

DRUGS (3)
  1. CEFUROXIME (MANUFACTURER UNKNOWN) (CEFUROXIME) (CEFUROXIME) [Suspect]
     Indication: ATYPICAL PNEUMONIA
     Dosage: 500 UG, 2 IN 1 D
  2. CAPRELSA (VANDETANIB) (VANDETANIB) [Suspect]
     Indication: THYROID CANCER
     Dosage: 300 MG, 1 IN 1 D
  3. DOXYCYCLIN (DOXYCYCLINE) (DOXYCYCLINE) [Suspect]
     Indication: ATYPICAL PNEUMONIA
     Dosage: 200 MG, 1 IN 1 D

REACTIONS (2)
  - Pancreatitis [None]
  - Renal failure acute [None]
